FAERS Safety Report 12876592 (Version 1)
Quarter: 2016Q4

REPORT INFORMATION
  Report Type: Spontaneous
  Country: US (occurrence: US)
  Receive Date: 20161021
  Receipt Date: 20161021
  Transmission Date: 20170207
  Serious: Yes (Hospitalization)
  Sender: FDA-Public Use
  Company Number: None

PATIENT
  Age: 78 Year
  Sex: Male
  Weight: 84.9 kg

DRUGS (10)
  1. VALPROIC ACID SOLUTION 250 MG PRECISION DOSE [Suspect]
     Active Substance: VALPROIC ACID
     Indication: EPILEPSY
     Dosage: 1000 MG HS GT
     Dates: start: 20160413, end: 20160608
  2. TAMSULOSIN [Concomitant]
     Active Substance: TAMSULOSIN
  3. OLANZAPINE. [Concomitant]
     Active Substance: OLANZAPINE
  4. MULTIVITMAMINS WITH MINERALS [Concomitant]
  5. VALPROIC ACID SOLUTION 500 MG PHARMACEUTICAL ASSOCIATES [Suspect]
     Active Substance: VALPROIC ACID
     Indication: EPILEPSY
     Dosage: 750 MG BID GT
     Dates: start: 20160413
  6. MAGNESIUM HYDROXIDE. [Concomitant]
     Active Substance: MAGNESIUM HYDROXIDE
  7. LACOSAMIDE. [Concomitant]
     Active Substance: LACOSAMIDE
  8. AMLODIPINE [Concomitant]
     Active Substance: AMLODIPINE BESYLATE
  9. ENALPARIL [Concomitant]
  10. CALCIUM CARBONATE SUSP. [Concomitant]

REACTIONS (4)
  - Oedema [None]
  - Pneumonia [None]
  - Acute respiratory failure [None]
  - Thrombocytopenia [None]

NARRATIVE: CASE EVENT DATE: 20160607
